FAERS Safety Report 6283795-4 (Version None)
Quarter: 2009Q3

REPORT INFORMATION
  Report Type: 
  Country: None (occurrence: None)
  Receive Date: 20090724
  Receipt Date: 20090716
  Transmission Date: 20100115
  Serious: Yes (Other)
  Sender: FDA-Public Use
  Company Number: US-ASTRAZENECA-2007UW21466

PATIENT
  Age: 62 Year
  Sex: Female
  Weight: 66.7 kg

DRUGS (9)
  1. ARIMIDEX [Suspect]
     Indication: BREAST CANCER
     Route: 048
     Dates: start: 20060101
  2. AMITRIPTYLINE HCL [Concomitant]
  3. VYTORIN [Concomitant]
     Dates: start: 20060101
  4. VITAMIN D [Concomitant]
  5. ASACHOL [Concomitant]
  6. FISH OIL [Concomitant]
     Dates: start: 20060101
  7. ZANTAC [Concomitant]
     Dates: start: 20060101
  8. VITAMIN B COMPLEX CAP [Concomitant]
  9. MULTI-VITAMIN [Concomitant]

REACTIONS (9)
  - ARTHRALGIA [None]
  - BLADDER PROLAPSE [None]
  - DISEASE PROGRESSION [None]
  - DYSPEPSIA [None]
  - INCREASED APPETITE [None]
  - JOINT CREPITATION [None]
  - PARAESTHESIA [None]
  - THROAT IRRITATION [None]
  - WEIGHT INCREASED [None]
